FAERS Safety Report 11868476 (Version 6)
Quarter: 2016Q2

REPORT INFORMATION
  Report Type: Report from Study
  Country: CA (occurrence: CA)
  Receive Date: 20151225
  Receipt Date: 20160415
  Transmission Date: 20160815
  Serious: Yes (Hospitalization, Other)
  Sender: FDA-Public Use
  Company Number: CA-ROCHE-1367564

PATIENT
  Age: 59 Year
  Sex: Female
  Weight: 92 kg

DRUGS (16)
  1. ASA [Concomitant]
     Active Substance: ASPIRIN
     Route: 065
  2. CRESTOR [Concomitant]
     Active Substance: ROSUVASTATIN CALCIUM
  3. METHYLPREDNISOLONE. [Concomitant]
     Active Substance: METHYLPREDNISOLONE
     Indication: PREMEDICATION
     Route: 042
     Dates: start: 20131016
  4. METHOTREXATE [Concomitant]
     Active Substance: METHOTREXATE
  5. EZETROL [Concomitant]
     Active Substance: EZETIMIBE
  6. TIAZAC (CANADA) [Concomitant]
  7. RITUXAN [Suspect]
     Active Substance: RITUXIMAB
     Indication: RHEUMATOID ARTHRITIS
     Dosage: DATE OF MOST RECENT RITUXIMAB INFUSION: 03/MAR/2014?DATE OF MOST RECENT RITUXIMAB INFUSION: 26/FEB/2
     Route: 042
     Dates: start: 20131016
  8. DIPHENHYDRAMINE HCL [Concomitant]
     Active Substance: DIPHENHYDRAMINE HYDROCHLORIDE
     Indication: PREMEDICATION
     Route: 048
     Dates: start: 20131016
  9. METFORMIN [Concomitant]
     Active Substance: METFORMIN HYDROCHLORIDE
  10. PREDNISONE. [Concomitant]
     Active Substance: PREDNISONE
  11. ENBREL [Concomitant]
     Active Substance: ETANERCEPT
  12. IBUPROFEN. [Concomitant]
     Active Substance: IBUPROFEN
  13. VITAMIN B12 [Concomitant]
     Active Substance: CYANOCOBALAMIN
  14. ACETAMINOPHEN. [Concomitant]
     Active Substance: ACETAMINOPHEN
     Indication: PREMEDICATION
     Route: 048
     Dates: start: 20131016
  15. COVERSYL [Concomitant]
     Active Substance: PERINDOPRIL
  16. FOLIC ACID. [Concomitant]
     Active Substance: FOLIC ACID

REACTIONS (10)
  - Rectal cancer [Not Recovered/Not Resolved]
  - Pain [Not Recovered/Not Resolved]
  - Nausea [Unknown]
  - Adenocarcinoma [Unknown]
  - Weight decreased [Unknown]
  - Abdominal pain lower [Recovered/Resolved]
  - Weight increased [Unknown]
  - Intestinal obstruction [Unknown]
  - Blood test abnormal [Unknown]
  - Blood pressure diastolic decreased [Unknown]

NARRATIVE: CASE EVENT DATE: 201403
